FAERS Safety Report 6390012-3 (Version None)
Quarter: 2009Q4

REPORT INFORMATION
  Report Type: 
  Country: None (occurrence: None)
  Receive Date: 20091006
  Receipt Date: 20090930
  Transmission Date: 20100525
  Serious: Yes (Other)
  Sender: FDA-Public Use
  Company Number: PHHY2009JP42114

PATIENT

DRUGS (1)
  1. TEGRETOL [Suspect]
     Dosage: UNK

REACTIONS (3)
  - ALTERED STATE OF CONSCIOUSNESS [None]
  - DRUG TOXICITY [None]
  - LIVER DISORDER [None]
